FAERS Safety Report 6813495-0 (Version None)
Quarter: 2010Q3

REPORT INFORMATION
  Report Type: 
  Country: None (occurrence: None)
  Receive Date: 20100701
  Receipt Date: 20100621
  Transmission Date: 20110219
  Serious: No
  Sender: FDA-Public Use
  Company Number: US-B.I. PHARMACEUTICALS,INC./RIDGEFIELD-2010-BP-07171BP

PATIENT
  Sex: Female

DRUGS (5)
  1. SPIRIVA [Suspect]
     Indication: CHRONIC OBSTRUCTIVE PULMONARY DISEASE
     Dosage: 18 MCG
     Route: 048
     Dates: start: 20091101
  2. ADVAIR DISKUS 100/50 [Concomitant]
     Indication: CHRONIC OBSTRUCTIVE PULMONARY DISEASE
     Dates: start: 20091101
  3. GABAPENTIN [Concomitant]
     Indication: NEUROPATHY PERIPHERAL
     Dates: start: 20100101
  4. LISINOPRIL [Concomitant]
     Indication: HYPERTENSION
  5. MELOXICAM [Concomitant]

REACTIONS (5)
  - HYPERSENSITIVITY [None]
  - INCORRECT ROUTE OF DRUG ADMINISTRATION [None]
  - POSTMENOPAUSAL HAEMORRHAGE [None]
  - RESTLESS LEGS SYNDROME [None]
  - SLEEP APNOEA SYNDROME [None]
